FAERS Safety Report 25339445 (Version 1)
Quarter: 2025Q2

REPORT INFORMATION
  Report Type: Spontaneous
  Country: FR (occurrence: FR)
  Receive Date: 20250521
  Receipt Date: 20250521
  Transmission Date: 20250717
  Serious: Yes (Hospitalization)
  Sender: JOHNSON AND JOHNSON
  Company Number: None

PATIENT
  Age: 52 Year
  Sex: Female
  Weight: 108 kg

DRUGS (3)
  1. RYBREVANT [Suspect]
     Active Substance: AMIVANTAMAB-VMJW
     Indication: Lung adenocarcinoma stage IV
     Route: 041
     Dates: start: 20250416, end: 20250416
  2. PEMETREXED [Suspect]
     Active Substance: PEMETREXED
     Indication: Lung adenocarcinoma stage IV
     Route: 042
     Dates: start: 20250416, end: 20250416
  3. CARBOPLATIN [Suspect]
     Active Substance: CARBOPLATIN
     Indication: Lung adenocarcinoma stage IV
     Route: 042
     Dates: start: 20250416, end: 20250416

REACTIONS (6)
  - Dermatitis acneiform [Recovered/Resolved]
  - Pancytopenia [Recovering/Resolving]
  - Erythema [Recovering/Resolving]
  - Dermatitis bullous [Recovered/Resolved]
  - Skin fissures [Recovered/Resolved]
  - Oedema [Recovering/Resolving]

NARRATIVE: CASE EVENT DATE: 20250418
